FAERS Safety Report 9187815 (Version 1)
Quarter: 2013Q1

REPORT INFORMATION
  Report Type: Spontaneous
  Country: US (occurrence: US)
  Receive Date: 20130325
  Receipt Date: 20130325
  Transmission Date: 20140127
  Serious: Yes (Hospitalization)
  Sender: FDA-Public Use
  Company Number: US-MYLANLABS-2012S1010407

PATIENT
  Age: 65 Year
  Sex: Female
  Weight: 65.77 kg

DRUGS (5)
  1. FENTANYL TRANSDERMAL SYSTEM [Suspect]
     Indication: BACK PAIN
     Dosage: CHANGES Q. 72 HOURS.
     Route: 062
     Dates: start: 201201, end: 201201
  2. LYRICA [Concomitant]
     Indication: FIBROMYALGIA
  3. BUPROPION [Concomitant]
     Indication: DEPRESSION
  4. CELEBREX [Concomitant]
     Indication: BACK PAIN
  5. FLUOXETINE [Concomitant]
     Indication: DEPRESSION

REACTIONS (3)
  - Drug effect increased [Recovered/Resolved]
  - Hallucination [Recovered/Resolved]
  - Confusional state [Recovered/Resolved]
